FAERS Safety Report 7743925-1 (Version None)
Quarter: 2011Q3

REPORT INFORMATION
  Report Type: 
  Country: None (occurrence: None)
  Receive Date: 20110912
  Receipt Date: 20110830
  Transmission Date: 20111222
  Serious: Yes (Death)
  Sender: FDA-Public Use
  Company Number: US-GLAXOSMITHKLINE-B0721744A

PATIENT
  Age: 75 Year
  Sex: Male
  Weight: 110 kg

DRUGS (9)
  1. ATENOLOL [Concomitant]
  2. LIPITOR [Concomitant]
  3. LEVOXYL [Concomitant]
  4. AVANDIA [Suspect]
     Indication: DIABETES MELLITUS
     Dosage: 4MG PER DAY
     Route: 048
     Dates: start: 20060223, end: 20091123
  5. JANUVIA [Concomitant]
  6. INDAPAMIDE [Concomitant]
  7. GLUCOTROL [Concomitant]
  8. TESTOSTERONE [Concomitant]
  9. LISINOPRIL [Concomitant]

REACTIONS (2)
  - DEATH [None]
  - CARDIOVASCULAR DISORDER [None]
